FAERS Safety Report 8587505-7 (Version None)
Quarter: 2012Q3

REPORT INFORMATION
  Report Type: 
  Country: None (occurrence: None)
  Receive Date: 20120810
  Receipt Date: 20120809
  Transmission Date: 20120928
  Serious: Yes (Death, Other)
  Sender: FDA-Public Use
  Company Number: HK-ABBOTT-12P-075-0960857-00

PATIENT
  Sex: Male
  Weight: 58 kg

DRUGS (6)
  1. NAPROXEN [Concomitant]
     Indication: RHEUMATOID ARTHRITIS
     Route: 048
  2. METHOTREXATE [Concomitant]
     Indication: RHEUMATOID ARTHRITIS
     Route: 048
  3. HUMIRA [Suspect]
     Indication: RHEUMATOID ARTHRITIS
     Route: 058
     Dates: start: 20120330, end: 20120622
  4. FOLIC ACID [Concomitant]
     Indication: PRODUCT USED FOR UNKNOWN INDICATION
  5. FAMOTIDINE [Concomitant]
     Indication: PRODUCT USED FOR UNKNOWN INDICATION
     Route: 048
  6. INDAPAMIDE [Concomitant]
     Indication: HYPERTENSION
     Route: 048

REACTIONS (7)
  - PYREXIA [None]
  - DECREASED APPETITE [None]
  - ABDOMINAL PAIN [None]
  - WEIGHT DECREASED [None]
  - SHOCK [None]
  - PERITONEAL TUBERCULOSIS [None]
  - HYPOTENSION [None]
